FAERS Safety Report 12118610 (Version 1)
Quarter: 2016Q1

REPORT INFORMATION
  Report Type: Spontaneous
  Country: TR (occurrence: TR)
  Receive Date: 20160226
  Receipt Date: 20160226
  Transmission Date: 20160526
  Serious: Yes (Hospitalization)
  Sender: FDA-Public Use
  Company Number: TR-ACTAVIS-2016-03850

PATIENT
  Age: 41 Year
  Sex: Female

DRUGS (1)
  1. CRAVIT [Suspect]
     Active Substance: LEVOFLOXACIN
     Indication: GENITAL INFECTION FEMALE
     Dosage: 500 MG, DAILY
     Route: 048
     Dates: start: 20160218

REACTIONS (4)
  - Palpitations [Recovering/Resolving]
  - Depression [Recovering/Resolving]
  - Hypotension [Recovering/Resolving]
  - Asthenia [Recovering/Resolving]

NARRATIVE: CASE EVENT DATE: 20160218
